FAERS Safety Report 16873648 (Version 2)
Quarter: 2019Q4

REPORT INFORMATION
  Report Type: Spontaneous
  Country: JP (occurrence: JP)
  Receive Date: 20191001
  Receipt Date: 20191010
  Transmission Date: 20200122
  Serious: Yes (Other)
  Sender: FDA-Public Use
  Company Number: JP-TAKEDA-2019TJP022834

PATIENT
  Age: 86 Year
  Sex: Female

DRUGS (1)
  1. TAKEPRON OD TABLETS 15 [Suspect]
     Active Substance: LANSOPRAZOLE
     Indication: GASTROOESOPHAGEAL REFLUX DISEASE
     Dosage: 15 MILLIGRAM, BID
     Route: 048
     Dates: start: 20190415

REACTIONS (1)
  - Internal haemorrhage [Recovering/Resolving]

NARRATIVE: CASE EVENT DATE: 20190925
